FAERS Safety Report 6274681-4 (Version None)
Quarter: 2009Q3

REPORT INFORMATION
  Report Type: 
  Country: None (occurrence: None)
  Receive Date: 20090721
  Receipt Date: 20080305
  Transmission Date: 20100115
  Serious: Yes (Other)
  Sender: FDA-Public Use
  Company Number: US-ASTRAZENECA-2007UW02307

PATIENT
  Age: 17925 Day
  Sex: Male
  Weight: 90.7 kg

DRUGS (9)
  1. SEROQUEL [Suspect]
     Indication: SCHIZOPHRENIA, PARANOID TYPE
     Route: 048
     Dates: start: 20020117, end: 20050101
  2. SEROQUEL [Suspect]
     Indication: MENTAL DISORDER
     Route: 048
     Dates: start: 20020117, end: 20050101
  3. SEROQUEL [Suspect]
     Dosage: 200 MG 1 TAB IN MORNING AND 3 TABLETS AT BED TIME
     Route: 048
     Dates: start: 20070118
  4. SEROQUEL [Suspect]
     Dosage: 200 MG 1 TAB IN MORNING AND 3 TABLETS AT BED TIME
     Route: 048
     Dates: start: 20070118
  5. LITHIUM [Concomitant]
     Dates: start: 20001017, end: 20010407
  6. TEMAZEPAM [Concomitant]
     Indication: SLEEP DISORDER
     Dosage: 15 MG CAP TAKE ONE OR TWO CAPSULES BY MOUTH AT ACTIVE BEDTIME
     Route: 048
     Dates: start: 20070118
  7. BENZTROPINE MESYLATE [Concomitant]
     Indication: MOVEMENT DISORDER
     Dosage: 1 MG TAB ONE TABLET BY MOUTH ACTIVE DAILY AS NEEDED
     Route: 048
     Dates: start: 20070118
  8. VENLAFAXINE HCL [Concomitant]
     Indication: DEPRESSION
     Route: 048
     Dates: start: 20070118
  9. GLIPIZIDE [Concomitant]
     Indication: TYPE 2 DIABETES MELLITUS
     Dates: start: 20080220

REACTIONS (5)
  - DIABETIC NEPHROPATHY [None]
  - HYPERTENSION [None]
  - HYPOGLYCAEMIA [None]
  - RENAL FAILURE [None]
  - TYPE 2 DIABETES MELLITUS [None]
